FAERS Safety Report 6527269-1 (Version None)
Quarter: 2010Q1

REPORT INFORMATION
  Report Type: 
  Country: None (occurrence: None)
  Receive Date: 20100105
  Receipt Date: 20091224
  Transmission Date: 20100710
  Serious: Yes (Hospitalization, Other)
  Sender: FDA-Public Use
  Company Number: JP-PFIZER INC-2009293362

PATIENT
  Age: 65 Year
  Sex: Male
  Weight: 66.4 kg

DRUGS (10)
  1. SELARA [Suspect]
     Indication: HYPERTENSION
     Dosage: 50 MG, 1X/DAY
     Route: 048
     Dates: start: 20091009, end: 20091102
  2. ACTOS [Suspect]
     Indication: DIABETES MELLITUS
     Dosage: 30 MG, 1X/DAY
     Route: 048
     Dates: end: 20091102
  3. LIPOVAS ^BANYU^ [Suspect]
     Indication: HYPERLIPIDAEMIA
     Dates: end: 20091102
  4. ALISKIREN [Concomitant]
     Dosage: UNK
     Route: 048
  5. SLOW-K [Concomitant]
     Dosage: UNK
     Route: 048
  6. DEPAKENE [Concomitant]
  7. NIFEDIPINE [Concomitant]
     Dosage: UNK
     Route: 048
  8. ARTIST [Concomitant]
     Dosage: UNK
     Route: 048
  9. DIOVANE [Concomitant]
     Dosage: UNK
     Route: 048
  10. CARVEDILOL [Concomitant]
     Dosage: UNK

REACTIONS (1)
  - RHABDOMYOLYSIS [None]
